FAERS Safety Report 6179797-9 (Version None)
Quarter: 2009Q2

REPORT INFORMATION
  Report Type: 
  Country: None (occurrence: None)
  Receive Date: 20090505
  Receipt Date: 20090423
  Transmission Date: 20091009
  Serious: Yes (Other)
  Sender: FDA-Public Use
  Company Number: US-PFIZER INC-2009205534

PATIENT
  Sex: Female
  Weight: 83.9 kg

DRUGS (2)
  1. CHANTIX [Suspect]
     Indication: SMOKING CESSATION THERAPY
     Dates: start: 20080401
  2. CHANTIX [Suspect]
     Dosage: UNK

REACTIONS (4)
  - ANXIETY [None]
  - MOOD ALTERED [None]
  - NERVOUSNESS [None]
  - SURGERY [None]
